FAERS Safety Report 14120349 (Version 1)
Quarter: 2017Q4

REPORT INFORMATION
  Report Type: Spontaneous
  Country: US (occurrence: US)
  Receive Date: 20171024
  Receipt Date: 20171024
  Transmission Date: 20180321
  Serious: No
  Sender: FDA-Public Use
  Company Number: US-PERRIGO-17US003087

PATIENT
  Age: 57 Year
  Sex: Male
  Weight: 100.23 kg

DRUGS (1)
  1. NICOTINE POLACRILEX [Suspect]
     Active Substance: NICOTINE
     Indication: SMOKING CESSATION THERAPY
     Dosage: 4 MG, 5 TO 8 TIMES DAILY
     Route: 002
     Dates: start: 20170314

REACTIONS (1)
  - Cough [Unknown]

NARRATIVE: CASE EVENT DATE: 201703
